FAERS Safety Report 4844962-7 (Version None)
Quarter: 2005Q4

REPORT INFORMATION
  Report Type: 
  Country: None (occurrence: None)
  Receive Date: 20051129
  Receipt Date: 20051116
  Transmission Date: 20060501
  Serious: Yes (Disabling)
  Sender: FDA-Public Use
  Company Number: 2005157987

PATIENT
  Sex: Female
  Weight: 75 kg

DRUGS (7)
  1. LYRICA [Suspect]
     Indication: DIABETIC NEUROPATHY
     Dosage: 300 MG (100 MG, 3 IN 1 D), ORAL
     Route: 048
     Dates: start: 20050401, end: 20051004
  2. GABAPENTIN [Suspect]
     Indication: DIABETIC NEUROPATHY
  3. MIXTARD HUMAN 70/30 [Concomitant]
  4. METFORMIN HCL [Concomitant]
  5. LISINOPRIL [Concomitant]
  6. QUININE SULFATE [Concomitant]
  7. THYROXINE             (LEVOTHYROXINE) [Concomitant]

REACTIONS (7)
  - ARTHRALGIA [None]
  - DIZZINESS [None]
  - FATIGUE [None]
  - HYPERHIDROSIS [None]
  - MENTAL IMPAIRMENT [None]
  - MYALGIA [None]
  - TREMOR [None]
